FAERS Safety Report 8142793-6 (Version None)
Quarter: 2012Q1

REPORT INFORMATION
  Report Type: 
  Country: None (occurrence: None)
  Receive Date: 20120216
  Receipt Date: 20120210
  Transmission Date: 20120608
  Serious: Yes (Hospitalization)
  Sender: FDA-Public Use
  Company Number: GB-MERCK-1202USA01828

PATIENT
  Age: 33 Year
  Sex: Female

DRUGS (7)
  1. DECADRON [Suspect]
     Indication: ANTIEMETIC SUPPORTIVE CARE
     Route: 048
     Dates: start: 20100907, end: 20100910
  2. NPLATE [Suspect]
     Indication: IDIOPATHIC THROMBOCYTOPENIC PURPURA
     Dosage: 1MG/KG
     Route: 058
     Dates: start: 20100920, end: 20100920
  3. TRANEXAMIC ACID [Suspect]
     Route: 048
     Dates: start: 20100922, end: 20100928
  4. RITUXIMAB [Suspect]
     Route: 042
     Dates: start: 20100917, end: 20100924
  5. LANSOPRAZOLE [Suspect]
     Indication: GASTROOESOPHAGEAL REFLUX PROPHYLAXIS
     Route: 048
     Dates: start: 20100907, end: 20100928
  6. NORETHINDRONE [Suspect]
     Route: 048
     Dates: start: 20100922, end: 20100928
  7. IMMUNE GLOBULIN (HUMAN) [Suspect]
     Route: 042
     Dates: start: 20100922, end: 20100923

REACTIONS (7)
  - RASH MACULO-PAPULAR [None]
  - RECTAL HAEMORRHAGE [None]
  - PURPURA [None]
  - HAEMOGLOBIN DECREASED [None]
  - MELAENA [None]
  - VAGINAL HAEMORRHAGE [None]
  - RASH ERYTHEMATOUS [None]
